FAERS Safety Report 5316444-X (Version None)
Quarter: 2007Q2

REPORT INFORMATION
  Report Type: 
  Country: None (occurrence: None)
  Receive Date: 20070504
  Receipt Date: 20070427
  Transmission Date: 20071010
  Serious: Yes (Hospitalization, Other)
  Sender: FDA-Public Use
  Company Number: HQWYE892827APR07

PATIENT
  Age: 81 Year
  Sex: Female

DRUGS (4)
  1. CORDARONE [Suspect]
     Route: 048
  2. ZOCOR [Suspect]
     Route: 048
  3. PERINDOPRIL ERBUMINE [Suspect]
     Route: 048
  4. LASIX [Suspect]
     Route: 048

REACTIONS (3)
  - FALL [None]
  - MALAISE [None]
  - RENAL FAILURE [None]
